FAERS Safety Report 8503924-9 (Version None)
Quarter: 2012Q3

REPORT INFORMATION
  Report Type: 
  Country: None (occurrence: None)
  Receive Date: 20120702
  Receipt Date: 20120619
  Transmission Date: 20120928
  Serious: Yes (Other)
  Sender: FDA-Public Use
  Company Number: ES-DEXPHARM-20120743

PATIENT

DRUGS (1)
  1. OMEPRAZOLE [Suspect]

REACTIONS (1)
  - DRUG HYPERSENSITIVITY [None]
